FAERS Safety Report 5006133-3 (Version None)
Quarter: 2006Q1

REPORT INFORMATION
  Report Type: 
  Country: None (occurrence: None)
  Receive Date: 20060328
  Receipt Date: 20060110
  Transmission Date: 20060701
  Serious: Yes (Hospitalization)
  Sender: FDA-Public Use
  Company Number: 06P-163-0321522-00

PATIENT
  Age: 62 Year
  Sex: Female
  Weight: 83.9154 kg

DRUGS (11)
  1. HUMIRA [Suspect]
     Indication: RHEUMATOID ARTHRITIS
     Dosage: 40 MG, 1 IN 1 WK, SUBCUTANEOUS
     Route: 058
     Dates: start: 20050120, end: 20051201
  2. DEXTROPROPOXYPHENE [Concomitant]
  3. CLONIDINE [Concomitant]
  4. MELOXICAM [Concomitant]
  5. LEVOTHYROXINE SODIUM [Concomitant]
  6. ATORVASTATIN CALCIUM [Concomitant]
  7. TOPROL-XL [Concomitant]
  8. ESTROGENS CONJUGATED [Concomitant]
  9. CITRICAL [Concomitant]
  10. GLUCOSAMINE [Concomitant]
  11. TOCOPHEROL CONCENTRATE CAP [Concomitant]

REACTIONS (3)
  - BLOOD PRESSURE INCREASED [None]
  - NASOPHARYNGITIS [None]
  - SINUS CONGESTION [None]
